FAERS Safety Report 7608300-9 (Version None)
Quarter: 2011Q3

REPORT INFORMATION
  Report Type: 
  Country: None (occurrence: None)
  Receive Date: 20110712
  Receipt Date: 20100715
  Transmission Date: 20111222
  Serious: Yes (Death)
  Sender: FDA-Public Use
  Company Number: 2010060063

PATIENT
  Age: 38 Year
  Sex: Male
  Weight: 114.3065 kg

DRUGS (4)
  1. CARISOPRODOL [Suspect]
  2. OXYCODONE HCL [Suspect]
  3. TRAMADOL HCL [Suspect]
  4. ALPRAZOLAM [Suspect]

REACTIONS (2)
  - TOXICITY TO VARIOUS AGENTS [None]
  - DRUG ABUSE [None]
